FAERS Safety Report 15826493 (Version 1)
Quarter: 2019Q1

REPORT INFORMATION
  Report Type: Spontaneous
  Country: JP (occurrence: JP)
  Receive Date: 20190115
  Receipt Date: 20190115
  Transmission Date: 20190417
  Serious: Yes (Hospitalization)
  Sender: FDA-Public Use
  Company Number: PHJP2019JP000602

PATIENT
  Age: 62 Year
  Sex: Female

DRUGS (1)
  1. ZOLEDRONATE [Suspect]
     Active Substance: ZOLEDRONIC ACID
     Indication: METASTASES TO BONE
     Dosage: UNK
     Route: 065
     Dates: start: 200809

REACTIONS (8)
  - Bone sequestrum [Unknown]
  - Purulent discharge [Unknown]
  - Bone swelling [Unknown]
  - Pain in jaw [Recovering/Resolving]
  - Fistula [Unknown]
  - Exposed bone in jaw [Unknown]
  - Osteonecrosis of jaw [Unknown]
  - Bone deformity [Unknown]

NARRATIVE: CASE EVENT DATE: 201404
